FAERS Safety Report 16459877 (Version 1)
Quarter: 2019Q2

REPORT INFORMATION
  Report Type: Spontaneous
  Country: US (occurrence: US)
  Receive Date: 20190510
  Receipt Date: 20190510
  Transmission Date: 20190711
  Serious: No
  Sender: FDA-Public Use
  Company Number: None

PATIENT
  Age: 10 Year
  Sex: Female

DRUGS (2)
  1. CLONIDINE. [Concomitant]
     Active Substance: CLONIDINE
  2. LUPRON DEPOT [Suspect]
     Active Substance: LEUPROLIDE ACETATE
     Indication: HYPOTHALAMO-PITUITARY DISORDER
     Dosage: ?          OTHER DOSE:11.25MG;OTHER FREQUENCY:UNKNOWN;?
     Route: 030
     Dates: start: 20180824

REACTIONS (2)
  - Product dispensing error [None]
  - Product administration interrupted [None]

NARRATIVE: CASE EVENT DATE: 20190510
